FAERS Safety Report 12394318 (Version 1)
Quarter: 2016Q2

REPORT INFORMATION
  Report Type: Spontaneous
  Country: US (occurrence: US)
  Receive Date: 20160523
  Receipt Date: 20160523
  Transmission Date: 20160815
  Serious: Yes (Other)
  Sender: FDA-Public Use
  Company Number: US-GE HEALTHCARE MEDICAL DIAGNOSTICS-OMPQ-PR-1605L-0829

PATIENT
  Age: 62 Year
  Sex: Female

DRUGS (5)
  1. OMNIPAQUE [Suspect]
     Active Substance: IOHEXOL
     Indication: DIAGNOSTIC PROCEDURE
  2. MEGESTROL [Concomitant]
     Active Substance: MEGESTROL
  3. SPIRONOLACTONE. [Concomitant]
     Active Substance: SPIRONOLACTONE
  4. OMNIPAQUE [Suspect]
     Active Substance: IOHEXOL
     Indication: ASCITES
     Route: 042
     Dates: start: 2000, end: 2000
  5. FUROSEMIDE. [Concomitant]
     Active Substance: FUROSEMIDE

REACTIONS (1)
  - Nephropathy toxic [Recovered/Resolved]

NARRATIVE: CASE EVENT DATE: 2000
